FAERS Safety Report 19080545 (Version 2)
Quarter: 2021Q2

REPORT INFORMATION
  Report Type: Spontaneous
  Country: CN (occurrence: CN)
  Receive Date: 20210331
  Receipt Date: 20210409
  Transmission Date: 20210717
  Serious: No
  Sender: FDA-Public Use
  Company Number: CN-ELI_LILLY_AND_COMPANY-CN202103010993

PATIENT
  Sex: Male
  Weight: 50 kg

DRUGS (1)
  1. CIALIS [Suspect]
     Active Substance: TADALAFIL
     Indication: PROSTATIC DISORDER
     Dosage: 5 MG, DAILY
     Route: 048
     Dates: start: 20210310, end: 20210315

REACTIONS (5)
  - Visual impairment [Recovering/Resolving]
  - Fatigue [Recovering/Resolving]
  - Dizziness [Recovering/Resolving]
  - Off label use [Unknown]
  - Somnolence [Recovering/Resolving]

NARRATIVE: CASE EVENT DATE: 20210310
